FAERS Safety Report 25254252 (Version 1)
Quarter: 2025Q2

REPORT INFORMATION
  Report Type: Spontaneous
  Country: BG (occurrence: BG)
  Receive Date: 20250430
  Receipt Date: 20250430
  Transmission Date: 20250717
  Serious: Yes (Other)
  Sender: NOVITIUM PHARMA
  Company Number: BG-NOVITIUMPHARMA-2025BGNVP01062

PATIENT
  Age: 91 Year
  Sex: Male

DRUGS (6)
  1. BISOPROLOL FUMARATE [Suspect]
     Active Substance: BISOPROLOL FUMARATE
     Indication: Hypertension
     Dates: start: 2023
  2. PROPAFENONE [Concomitant]
     Active Substance: PROPAFENONE
     Indication: Atrial fibrillation
     Dosage: HALF A TABLET
  3. PROPAFENONE [Concomitant]
     Active Substance: PROPAFENONE
     Indication: Atrial flutter
  4. APIXABAN [Concomitant]
     Active Substance: APIXABAN
     Indication: Product used for unknown indication
  5. SPIRONOLACTONE [Concomitant]
     Active Substance: SPIRONOLACTONE
     Indication: Product used for unknown indication
  6. Nitrosamine [Concomitant]
     Indication: Product used for unknown indication

REACTIONS (3)
  - Leukoplakia oral [Unknown]
  - Lichen planus [Unknown]
  - Product contamination [Unknown]
